FAERS Safety Report 19987936 (Version 1)
Quarter: 2021Q4

REPORT INFORMATION
  Report Type: Spontaneous
  Country: GB (occurrence: GB)
  Receive Date: 20211023
  Receipt Date: 20211023
  Transmission Date: 20220304
  Serious: Yes (Hospitalization, Other)
  Sender: FDA-Public Use
  Company Number: GB-INDOCO-000247

PATIENT
  Age: 65 Year
  Sex: Female

DRUGS (1)
  1. OLANZAPINE [Suspect]
     Active Substance: OLANZAPINE
     Indication: Schizophrenia
     Dosage: ONCE NIGHTLY

REACTIONS (3)
  - Rhabdomyolysis [Recovered/Resolved]
  - Eosinophilic myocarditis [Recovered/Resolved]
  - Acute kidney injury [Recovered/Resolved]
